FAERS Safety Report 22272872 (Version 1)
Quarter: 2023Q2

REPORT INFORMATION
  Report Type: Other
  Country: US (occurrence: None)
  Receive Date: 20230502
  Receipt Date: 20230502
  Transmission Date: 20230722
  Serious: Yes (Other)
  Sender: FDA-Public Use
  Company Number: US-ROCHE-3341020

PATIENT
  Age: 65 Year
  Sex: Male

DRUGS (1)
  1. GAVRETO [Suspect]
     Active Substance: PRALSETINIB
     Indication: Thyroid cancer
     Dosage: TAKE 4 CAPSULE(S) BY MOUTH EVERY DAY
     Route: 048

REACTIONS (1)
  - Neoplasm malignant [Unknown]
